FAERS Safety Report 13028631 (Version 1)
Quarter: 2016Q4

REPORT INFORMATION
  Report Type: Spontaneous
  Country: FR (occurrence: FR)
  Receive Date: 20161214
  Receipt Date: 20161214
  Transmission Date: 20170207
  Serious: Yes (Other)
  Sender: FDA-Public Use
  Company Number: FR-PFIZER INC-2015039304

PATIENT
  Age: 62 Year
  Sex: Female

DRUGS (2)
  1. NOVATREX NOS [Suspect]
     Active Substance: AZITHROMYCIN OR METHOTREXATE SODIUM
     Dosage: 2.5 MG, WEEKLY (EVERY WEDNESDAY IN THE MORNING)
  2. NOVATREX NOS [Suspect]
     Active Substance: AZITHROMYCIN OR METHOTREXATE SODIUM
     Dosage: 2.5 MG, UNK
     Dates: start: 2010

REACTIONS (11)
  - Rheumatoid arthritis [Unknown]
  - Benign neoplasm of thyroid gland [Unknown]
  - Ulcer [Unknown]
  - Abdominal pain [Unknown]
  - Contusion [Unknown]
  - Drug dose omission [Unknown]
  - Pruritus [Unknown]
  - Gingival bleeding [Unknown]
  - Rash macular [Unknown]
  - Myalgia [Unknown]
  - Liver disorder [Unknown]

NARRATIVE: CASE EVENT DATE: 20161207
